FAERS Safety Report 4597967-8 (Version None)
Quarter: 2005Q1

REPORT INFORMATION
  Report Type: 
  Country: None (occurrence: None)
  Receive Date: 20050301
  Receipt Date: 20050218
  Transmission Date: 20050727
  Serious: Yes (Other)
  Sender: FDA-Public Use
  Company Number: 210446

PATIENT
  Age: 11 Year
  Sex: Female

DRUGS (2)
  1. NUTROPIN AQ [Suspect]
     Indication: TURNER'S SYNDROME
     Dates: end: 20041101
  2. NUTROPIN DEPOT [Suspect]

REACTIONS (4)
  - DRUG INEFFECTIVE [None]
  - HEPATIC ADENOMA [None]
  - INSULIN-LIKE GROWTH FACTOR DECREASED [None]
  - TREATMENT NONCOMPLIANCE [None]
